FAERS Safety Report 12640581 (Version 10)
Quarter: 2018Q3

REPORT INFORMATION
  Report Type: Report from Study
  Country: FR (occurrence: FR)
  Receive Date: 20160810
  Receipt Date: 20180829
  Transmission Date: 20181010
  Serious: Yes (Hospitalization, Other)
  Sender: FDA-Public Use
  Company Number: FR-ROCHE-1809443

PATIENT
  Age: 72 Year
  Sex: Male
  Weight: 52 kg

DRUGS (44)
  1. PREDNISONE. [Suspect]
     Active Substance: PREDNISONE
     Indication: B-CELL LYMPHOMA
     Dosage: MOST RECENT DOSE RECIEVED PRIOR TO FIRST EPISODE OF FEBRILE NEUTROPENIA ON 26/JUL/2016: 100 MG?MOST
     Route: 048
     Dates: start: 20160425
  2. PRAVASTATINE [Concomitant]
     Active Substance: PRAVASTATIN
     Indication: HYPERCHOLESTEROLAEMIA
     Route: 065
     Dates: start: 2006, end: 20160802
  3. ALPRAZOLAM. [Concomitant]
     Active Substance: ALPRAZOLAM
     Indication: ANXIETY
     Route: 065
     Dates: start: 2015, end: 20160802
  4. BETAHISTINE [Concomitant]
     Active Substance: BETAHISTINE
     Indication: MENIERE^S DISEASE
     Route: 065
     Dates: start: 1983
  5. DOLIPRANE [Concomitant]
     Active Substance: ACETAMINOPHEN
     Indication: PAIN IN EXTREMITY
     Route: 065
     Dates: start: 201602
  6. LOVENOX [Concomitant]
     Active Substance: ENOXAPARIN SODIUM
     Indication: THROMBOSIS
     Route: 065
     Dates: start: 20160425, end: 20161104
  7. KAYEXALATE [Concomitant]
     Active Substance: SODIUM POLYSTYRENE SULFONATE
     Indication: HYPERKALAEMIA
     Route: 065
     Dates: start: 20160825, end: 20160825
  8. POLARAMINE [Concomitant]
     Active Substance: DEXCHLORPHENIRAMINE MALEATE
     Route: 065
     Dates: start: 20160722, end: 20160722
  9. BACTRIM [Concomitant]
     Active Substance: SULFAMETHOXAZOLE\TRIMETHOPRIM
     Indication: PNEUMOCYSTIS JIROVECII PNEUMONIA
     Route: 065
     Dates: start: 20160425
  10. PAROEX [Concomitant]
     Active Substance: CHLORHEXIDINE GLUCONATE
     Indication: STOMATITIS
     Route: 065
     Dates: start: 20160425, end: 20160824
  11. PERFALGAN [Concomitant]
     Active Substance: ACETAMINOPHEN
     Route: 065
     Dates: start: 20160722, end: 20160722
  12. BICARBONATE [Concomitant]
     Route: 065
     Dates: start: 20160825, end: 20160827
  13. BICARBONATE [Concomitant]
     Route: 065
     Dates: start: 20160828, end: 201610
  14. FLUOXETINE [Concomitant]
     Active Substance: FLUOXETINE HYDROCHLORIDE
     Route: 065
     Dates: start: 20161024
  15. PLATELETS [Concomitant]
     Active Substance: HUMAN PLATELET, ALLOGENIC
     Indication: PANCYTOPENIA
     Route: 065
     Dates: start: 20170523, end: 20170523
  16. PARACETAMOL [Concomitant]
     Active Substance: ACETAMINOPHEN
     Indication: PYREXIA
     Route: 065
     Dates: start: 20160823, end: 20160823
  17. PERFALGAN [Concomitant]
     Active Substance: ACETAMINOPHEN
     Route: 065
     Dates: start: 20160812, end: 20160812
  18. BEPANTHEN (FRANCE) [Concomitant]
     Indication: ANORECTAL DISCOMFORT
     Route: 065
     Dates: start: 20160802, end: 20160810
  19. SONDALIS [Concomitant]
     Active Substance: UNSPECIFIED INGREDIENT
     Indication: WEIGHT DECREASED
     Route: 065
     Dates: start: 20160823, end: 20160828
  20. AUGMENTIN [Concomitant]
     Active Substance: AMOXICILLIN\CLAVULANATE POTASSIUM
     Indication: PYREXIA
     Route: 065
     Dates: start: 20160730, end: 20160731
  21. POLARAMINE [Concomitant]
     Active Substance: DEXCHLORPHENIRAMINE MALEATE
     Indication: STOMATITIS
     Route: 065
     Dates: start: 20160825, end: 20160827
  22. CYCLOPHOSPHAMIDE. [Suspect]
     Active Substance: CYCLOPHOSPHAMIDE
     Indication: B-CELL LYMPHOMA
     Dosage: MOST RECENT DOSE RECIEVED  PRIOR TO FIRST EPISODE OF FEBRILE NEUTROPENIA ON 22/JUL/2016: 1140 MG AT
     Route: 042
     Dates: start: 20160425
  23. VINCRISTINE [Suspect]
     Active Substance: VINCRISTINE
     Indication: B-CELL LYMPHOMA
     Dosage: MOST RECENT DOSE RECIEVED PRIOR TO FIRST EPISODE OF FEBRILE NEUTROPENIA ON 22/JUL/2016: 2 MG AT 14:0
     Route: 042
     Dates: start: 20160425
  24. MOPRAL [Concomitant]
     Active Substance: OMEPRAZOLE
     Indication: ABDOMINAL PAIN UPPER
     Route: 065
     Dates: start: 20160425, end: 201610
  25. PARACETAMOL [Concomitant]
     Active Substance: ACETAMINOPHEN
     Route: 065
     Dates: start: 20160722, end: 20160722
  26. VENETOCLAX. [Suspect]
     Active Substance: VENETOCLAX
     Indication: B-CELL LYMPHOMA
     Dosage: 200 TO 800 MILLIGRAMS (MG) TABLETS WILL BE ADMINISTERED ORALLY ONCE DAILY (QD) ?MOST RECENT DOSE REC
     Route: 048
     Dates: start: 20160428
  27. FLUOXETINE [Concomitant]
     Active Substance: FLUOXETINE HYDROCHLORIDE
     Indication: ANXIETY
     Route: 065
     Dates: start: 2015, end: 20160802
  28. OXYCONTIN [Concomitant]
     Active Substance: OXYCODONE HYDROCHLORIDE
     Indication: PAIN IN EXTREMITY
     Route: 065
     Dates: start: 20160429
  29. PAROEX [Concomitant]
     Active Substance: CHLORHEXIDINE GLUCONATE
     Route: 065
     Dates: start: 20160828, end: 201610
  30. FORTIMEL [Concomitant]
     Active Substance: DIETARY SUPPLEMENT
     Indication: WEIGHT DECREASED
     Route: 065
     Dates: start: 20160517, end: 20160822
  31. POLARAMINE [Concomitant]
     Active Substance: DEXCHLORPHENIRAMINE MALEATE
     Indication: PREMEDICATION
     Route: 065
     Dates: start: 20160812, end: 20160812
  32. ZELITREX [Concomitant]
     Active Substance: VALACYCLOVIR HYDROCHLORIDE
     Indication: HERPES ZOSTER
     Route: 065
     Dates: start: 20160425
  33. PAROEX [Concomitant]
     Active Substance: CHLORHEXIDINE GLUCONATE
     Route: 065
     Dates: start: 20160825, end: 20160827
  34. PERFALGAN [Concomitant]
     Active Substance: ACETAMINOPHEN
     Indication: PREMEDICATION
     Route: 065
     Dates: start: 20160812, end: 20160812
  35. ONDANSETRON [Concomitant]
     Active Substance: ONDANSETRON
     Route: 065
     Dates: start: 20160812, end: 20160812
  36. BICARBONATE [Concomitant]
     Indication: STOMATITIS
     Route: 065
     Dates: start: 20160425, end: 20160824
  37. RITUXIMAB. [Suspect]
     Active Substance: RITUXIMAB
     Indication: B-CELL LYMPHOMA
     Dosage: MOST RECENT DOSE RECIEVED PRIOR TO FIRST EPISODE OF FEBRILE NEUTROPENIA ON 22/JUL/2016 :570 (MG) AT
     Route: 042
     Dates: start: 20160425
  38. DOXORUBICIN [Suspect]
     Active Substance: DOXORUBICIN
     Indication: B-CELL LYMPHOMA
     Dosage: MOST RECENT DOSE RECIEVED PRIOR TO FIRST EPISODE OF FEBRILE NEUTROPENIA ON 22/JUL/2016: 80 MG AT 13:
     Route: 042
     Dates: start: 20160425
  39. OXYNORMORO [Concomitant]
     Active Substance: OXYCODONE HYDROCHLORIDE
     Indication: PAIN IN EXTREMITY
     Route: 065
     Dates: start: 20160429
  40. PLATELETS [Concomitant]
     Active Substance: HUMAN PLATELET, ALLOGENIC
     Indication: THROMBOCYTOPENIA
     Route: 065
     Dates: start: 20160823, end: 20160823
  41. CIPROFLOXACINE [Concomitant]
     Active Substance: CIPROFLOXACIN
     Indication: PYREXIA
     Route: 065
     Dates: start: 20160730, end: 20160731
  42. FLAGYL [Concomitant]
     Active Substance: METRONIDAZOLE\METRONIDAZOLE HYDROCHLORIDE
     Indication: DIARRHOEA
     Route: 065
     Dates: start: 20160730, end: 20160813
  43. APREPITANT. [Concomitant]
     Active Substance: APREPITANT
     Indication: PREMEDICATION
     Route: 065
     Dates: start: 20160722, end: 20160722
  44. ONDANSETRON [Concomitant]
     Active Substance: ONDANSETRON
     Route: 065
     Dates: start: 20160722, end: 20160722

REACTIONS (4)
  - Pancytopenia [Not Recovered/Not Resolved]
  - Myelodysplastic syndrome [Not Recovered/Not Resolved]
  - Clostridium difficile infection [Recovered/Resolved]
  - Febrile neutropenia [Recovered/Resolved]

NARRATIVE: CASE EVENT DATE: 20160731
